FAERS Safety Report 5760210-8 (Version None)
Quarter: 2008Q2

REPORT INFORMATION
  Report Type: 
  Country: None (occurrence: None)
  Receive Date: 20080602
  Receipt Date: 20080528
  Transmission Date: 20081010
  Serious: Yes (Hospitalization)
  Sender: FDA-Public Use
  Company Number: 2008SP010088

PATIENT
  Age: 59 Year
  Sex: Male

DRUGS (2)
  1. PEG-INTRON [Suspect]
     Indication: HEPATITIS C
     Dosage: SC
     Route: 058
  2. REBETOL [Suspect]
     Indication: HEPATITIS C
     Dosage: PO
     Route: 048

REACTIONS (8)
  - ANTI-INSULIN RECEPTOR ANTIBODY POSITIVE [None]
  - ASTHENIA [None]
  - HYPERGLYCAEMIA [None]
  - HYPERINSULINAEMIA [None]
  - HYPOKALAEMIA [None]
  - NO THERAPEUTIC RESPONSE [None]
  - PYREXIA [None]
  - RENAL TUBULAR DISORDER [None]
